FAERS Safety Report 9240621 (Version 1)
Quarter: 2013Q1

REPORT INFORMATION
  Report Type: Spontaneous
  Country: US (occurrence: None)
  Receive Date: 20121120
  Receipt Date: 20121120
  Transmission Date: 20140127
  Serious: No
  Sender: FDA-Public Use
  Company Number: 1000037785

PATIENT
  Age: 65 Year
  Sex: Male

DRUGS (4)
  1. VIIBRYD [Suspect]
     Indication: DEPRESSION
     Dosage: 10 MG (10 MG, 1 IN 1 D), ORAL
     Route: 048
     Dates: start: 20120730, end: 20120805
  2. PRAVASTATIN (PRAVASTATIN) PRAVASTATIN) [Concomitant]
  3. TRIAMTERENE (TRIAMTERENE) (TRIAMTETENE) [Concomitant]
  4. METOPROLOL (METROPROLOL) (METOPROLOL) [Concomitant]

REACTIONS (1)
  - Semen discolouration [None]
